FAERS Safety Report 5866709-8 (Version None)
Quarter: 2008Q3

REPORT INFORMATION
  Report Type: 
  Country: None (occurrence: None)
  Receive Date: 20080828
  Receipt Date: 20080828
  Transmission Date: 20090109
  Serious: Yes (Other)
  Sender: FDA-Public Use
  Company Number: None

PATIENT
  Age: 60 Year
  Sex: Female
  Weight: 65.7716 kg

DRUGS (1)
  1. AVELOX [Suspect]
     Indication: SINUSITIS
     Dosage: ONE TAB 1 A DAY PO
     Route: 048
     Dates: start: 20080129, end: 20080216

REACTIONS (1)
  - VASCULITIS [None]
